FAERS Safety Report 6662994-3 (Version None)
Quarter: 2010Q2

REPORT INFORMATION
  Report Type: 
  Country: None (occurrence: None)
  Receive Date: 20100401
  Receipt Date: 20100322
  Transmission Date: 20101027
  Serious: Yes (Other)
  Sender: FDA-Public Use
  Company Number: CA-JNJFOC-20100307105

PATIENT
  Sex: Male
  Weight: 58.97 kg

DRUGS (2)
  1. REMICADE [Suspect]
     Indication: CROHN'S DISEASE
     Route: 042
     Dates: start: 20050401, end: 20091110
  2. IMURAN [Concomitant]

REACTIONS (2)
  - HAEMOPTYSIS [None]
  - SKIN CANCER [None]
